FAERS Safety Report 10087149 (Version 2)
Quarter: 2014Q2

REPORT INFORMATION
  Report Type: Spontaneous
  Country: US (occurrence: US)
  Receive Date: 20140418
  Receipt Date: 20140418
  Transmission Date: 20141212
  Serious: No
  Sender: FDA-Public Use
  Company Number: US-GE HEALTHCARE MEDICAL DIAGNOSTICS-VISP-PR-1402S-0090

PATIENT
  Age: 64 Year
  Sex: Female
  Weight: 93.98 kg

DRUGS (2)
  1. VISIPAQUE [Suspect]
     Indication: RECTAL CANCER
     Route: 042
     Dates: start: 20140225
  2. VISIPAQUE [Suspect]
     Indication: DIAGNOSTIC PROCEDURE

REACTIONS (4)
  - Flushing [Recovered/Resolved]
  - Pruritus [Unknown]
  - Urticaria [Unknown]
  - Dyspnoea [Recovered/Resolved]
